FAERS Safety Report 6336635-9 (Version None)
Quarter: 2009Q3

REPORT INFORMATION
  Report Type: 
  Country: None (occurrence: None)
  Receive Date: 20090901
  Receipt Date: 20090826
  Transmission Date: 20100115
  Serious: Yes (Other)
  Sender: FDA-Public Use
  Company Number: CA-WYE-G04233109

PATIENT
  Age: 66 Year
  Sex: Male
  Weight: 86.3 kg

DRUGS (22)
  1. TIGECYCLINE [Suspect]
     Indication: POST PROCEDURAL INFECTION
     Route: 042
     Dates: start: 20090805, end: 20090805
  2. TIGECYCLINE [Suspect]
     Indication: PNEUMONIA
     Route: 042
     Dates: start: 20090806, end: 20090810
  3. FENTANYL [Concomitant]
     Dosage: 50 MCG/HR PATCH Q3D
     Route: 003
     Dates: start: 20090811
  4. BUPIVACAINE [Concomitant]
     Dosage: UNKNOWN
     Route: 008
     Dates: start: 20090731, end: 20090801
  5. MIDAZOLAM HCL [Concomitant]
     Dosage: CONTINUOUS DRIP
     Route: 042
     Dates: start: 20090731, end: 20090803
  6. GABAPENTIN [Concomitant]
     Route: 048
     Dates: start: 20090731, end: 20090805
  7. MOXIFLOXACIN HCL [Concomitant]
     Route: 042
     Dates: start: 20090731, end: 20090805
  8. ROSUVASTATIN [Concomitant]
     Route: 048
     Dates: start: 20090731
  9. ENOXAPARIN SODIUM [Concomitant]
     Dosage: 5000 UNIT EVERY 24 HR
     Route: 058
     Dates: start: 20090731
  10. DOCUSATE [Concomitant]
     Route: 050
     Dates: start: 20090731
  11. RANITIDINE [Concomitant]
     Route: 042
     Dates: start: 20090731
  12. AMIODARONE [Concomitant]
     Route: 042
     Dates: start: 20090801, end: 20090807
  13. PROCAINAMIDE [Concomitant]
     Route: 042
     Dates: start: 20090802, end: 20090802
  14. DIGOXIN [Concomitant]
     Route: 042
     Dates: start: 20090802, end: 20090806
  15. TAZOCIN [Concomitant]
     Route: 042
     Dates: start: 20090802, end: 20090818
  16. VANCOMYCIN [Concomitant]
     Route: 042
     Dates: start: 20090803, end: 20090805
  17. FLUCONAZOLE [Concomitant]
     Route: 042
     Dates: start: 20090805, end: 20090810
  18. METOPROLOL [Concomitant]
     Route: 042
     Dates: start: 20090806, end: 20090817
  19. METOPROLOL [Concomitant]
     Route: 050
     Dates: start: 20090818
  20. METRONIDAZOLE [Concomitant]
     Route: 042
     Dates: start: 20090810, end: 20090817
  21. CLAVULIN [Concomitant]
     Route: 050
     Dates: start: 20090818
  22. FENTANYL [Concomitant]
     Dosage: CONTINUOUS DRIP
     Route: 042
     Dates: start: 20090730, end: 20090814

REACTIONS (6)
  - ABDOMINAL PAIN [None]
  - LIPASE INCREASED [None]
  - NAUSEA [None]
  - PANCREATITIS [None]
  - PYREXIA [None]
  - VOMITING [None]
